FAERS Safety Report 23088192 (Version 1)
Quarter: 2023Q4

REPORT INFORMATION
  Report Type: Spontaneous
  Country: US (occurrence: US)
  Receive Date: 20231020
  Receipt Date: 20231020
  Transmission Date: 20240110
  Serious: Yes (Death, Other)
  Sender: FDA-Public Use
  Company Number: US-OPELLA-2023OHG012098

PATIENT
  Age: 82 Year
  Sex: Male

DRUGS (2)
  1. TALC [Suspect]
     Active Substance: TALC
     Indication: Product used for unknown indication
  2. DESENEX NOS [Suspect]
     Active Substance: CLOTRIMAZOLE OR MICONAZOLE NITRATE
     Indication: Product used for unknown indication

REACTIONS (5)
  - Mesothelioma [Fatal]
  - Exposure to chemical pollution [Fatal]
  - Pain [Unknown]
  - Anxiety [Unknown]
  - Social problem [Unknown]
